FAERS Safety Report 15350348 (Version 1)
Quarter: 2018Q3

REPORT INFORMATION
  Report Type: Spontaneous
  Country: ES (occurrence: ES)
  Receive Date: 20180905
  Receipt Date: 20180905
  Transmission Date: 20181010
  Serious: Yes (Death, Life-Threatening, Other)
  Sender: FDA-Public Use
  Company Number: PHHY2018ES085962

PATIENT
  Sex: Female
  Weight: 1 kg

DRUGS (2)
  1. IBUPROFEN. [Suspect]
     Active Substance: IBUPROFEN
     Indication: PATENT DUCTUS ARTERIOSUS REPAIR
  2. IBUPROFEN. [Suspect]
     Active Substance: IBUPROFEN
     Indication: PATENT DUCTUS ARTERIOSUS REPAIR
     Dosage: 1 CYCLE
     Route: 041

REACTIONS (5)
  - Underdose [Recovered/Resolved]
  - Drug ineffective [Unknown]
  - Necrotising colitis [Unknown]
  - Death [Fatal]
  - Intraventricular haemorrhage [Unknown]
